FAERS Safety Report 8960527 (Version 1)
Quarter: 2012Q4

REPORT INFORMATION
  Report Type: Spontaneous
  Country: US (occurrence: None)
  Receive Date: 20121203
  Receipt Date: 20121203
  Transmission Date: 20130627
  Serious: Yes (Hospitalization)
  Sender: FDA-Public Use
  Company Number: 2012CA0374

PATIENT
  Age: 42 Year
  Sex: Female

DRUGS (1)
  1. KINERET (ANAKINRA), NOT AVAILABLE [Suspect]
     Indication: STILL^S DISEASE ADULT ONSET
     Dosage: (200 mg, 1 in 1 D)

REACTIONS (3)
  - Cellulitis [None]
  - Hypersensitivity [None]
  - Burning sensation [None]
